FAERS Safety Report 6951284-7 (Version None)
Quarter: 2010Q3

REPORT INFORMATION
  Report Type: 
  Country: None (occurrence: None)
  Receive Date: 20100828
  Receipt Date: 20100402
  Transmission Date: 20110219
  Serious: No
  Sender: FDA-Public Use
  Company Number: US-ABBOTT-10P-163-0633918-00

PATIENT
  Sex: Male
  Weight: 107.14 kg

DRUGS (14)
  1. NIASPAN [Suspect]
     Indication: HIGH DENSITY LIPOPROTEIN DECREASED
     Route: 048
     Dates: start: 20090601, end: 20100203
  2. NIASPAN [Suspect]
     Dosage: EVERY NIGHT
     Dates: start: 20100204, end: 20100301
  3. NIASPAN [Suspect]
     Dosage: 1/2 HR AFTER TAKING CRESTOR AND ASPIRIN.       Q HS 1/2 HR AFTER CRESTOR AND ASPIRIN
  4. CRESTOR [Concomitant]
     Indication: BLOOD CHOLESTEROL INCREASED
     Dosage: EVERY NIGHT
     Route: 048
  5. CRESTOR [Concomitant]
     Dates: start: 20091112
  6. ASPIRIN [Concomitant]
     Indication: PRODUCT USED FOR UNKNOWN INDICATION
     Dosage: DAILY
  7. ASPIRIN [Concomitant]
  8. ENALAPRIL [Concomitant]
     Indication: HYPERTENSION
  9. METOPROLOL [Concomitant]
     Indication: HYPERTENSION
  10. CLONIDINE [Concomitant]
     Indication: HYPERTENSION
  11. NORVASC [Concomitant]
     Indication: HYPERTENSION
  12. KLOR-CON [Concomitant]
     Indication: PRODUCT USED FOR UNKNOWN INDICATION
  13. FUROSEMIDE [Concomitant]
     Indication: PRODUCT USED FOR UNKNOWN INDICATION
  14. HYDROCHLOROTHIAZIDE [Concomitant]
     Indication: HYPERTENSION
     Route: 048

REACTIONS (6)
  - ARTHRALGIA [None]
  - GOUT [None]
  - HOT FLUSH [None]
  - JOINT RANGE OF MOTION DECREASED [None]
  - MOBILITY DECREASED [None]
  - PAIN IN EXTREMITY [None]
